FAERS Safety Report 20430439 (Version 1)
Quarter: 2022Q1

REPORT INFORMATION
  Report Type: Report from Study
  Country: FR (occurrence: FR)
  Receive Date: 20220204
  Receipt Date: 20220204
  Transmission Date: 20220423
  Serious: Yes (Hospitalization, Other)
  Sender: FDA-Public Use
  Company Number: FR-SERVIER-S20008561

PATIENT

DRUGS (6)
  1. ONCASPAR [Suspect]
     Active Substance: PEGASPARGASE
     Indication: Acute lymphocytic leukaemia
     Dosage: 1575 IU, QD,  D15, D43
     Route: 042
     Dates: start: 20200522
  2. TN UNSPECIFIED [Concomitant]
     Indication: Acute lymphocytic leukaemia
     Dosage: 620 MG, FROM D1 TO D29
     Route: 042
     Dates: start: 20200622
  3. TN UNSPECIFIED [Concomitant]
     Indication: Acute lymphocytic leukaemia
     Dosage: 47 MG FROM D3 TO D6, D10 TO D14, D31 TO D34
     Route: 042
     Dates: start: 20200624
  4. TN UNSPECIFIED [Concomitant]
     Dosage: 25 MG, ON D3, D10, D30, D38
     Route: 037
     Dates: start: 20200624
  5. TN UNSPECIFIED [Concomitant]
     Indication: Acute lymphocytic leukaemia
     Dosage: 12.5 MG, ON D3, D31
     Route: 037
     Dates: start: 20200624
  6. TN UNSPECIFIED [Concomitant]
     Indication: Acute lymphocytic leukaemia
     Dosage: 10 MG , ON D3, D31
     Route: 037
     Dates: start: 20200624

REACTIONS (2)
  - Malnutrition [Recovered/Resolved]
  - Dermo-hypodermitis [Recovered/Resolved]

NARRATIVE: CASE EVENT DATE: 20200624
